FAERS Safety Report 7212716-2 (Version None)
Quarter: 2011Q1

REPORT INFORMATION
  Report Type: 
  Country: None (occurrence: None)
  Receive Date: 20110106
  Receipt Date: 20110104
  Transmission Date: 20110831
  Serious: Yes (Other)
  Sender: FDA-Public Use
  Company Number: US-JNJFOC-20110100982

PATIENT
  Sex: Female

DRUGS (1)
  1. CONCERTA [Suspect]
     Indication: PRODUCT USED FOR UNKNOWN INDICATION
     Route: 065

REACTIONS (4)
  - DECREASED APPETITE [None]
  - ATTENTION DEFICIT/HYPERACTIVITY DISORDER [None]
  - GROWTH RETARDATION [None]
  - DRUG INEFFECTIVE [None]
